FAERS Safety Report 18785926 (Version 1)
Quarter: 2021Q1

REPORT INFORMATION
  Report Type: Spontaneous
  Country: US (occurrence: US)
  Receive Date: 20210125
  Receipt Date: 20210125
  Transmission Date: 20210419
  Serious: No
  Sender: FDA-Public Use
  Company Number: US-ROCHE-2601812

PATIENT
  Age: 72 Year
  Sex: Female
  Weight: 40.86 kg

DRUGS (4)
  1. RITUXAN [Suspect]
     Active Substance: RITUXIMAB
     Indication: MASS
     Dosage: INJECTED INTO BOTH THE EYES ;ONGOING: YES
     Route: 042
     Dates: start: 20200429
  2. RITUXAN [Suspect]
     Active Substance: RITUXIMAB
     Indication: LYMPHOMA
     Dosage: ONGOING YES
     Route: 042
     Dates: start: 2017
  3. ALENDRONATE [Concomitant]
     Active Substance: ALENDRONATE SODIUM
     Indication: OSTEOPENIA
     Dosage: YES
     Route: 048
  4. RITUXAN [Suspect]
     Active Substance: RITUXIMAB
     Indication: B-CELL LYMPHOMA
     Dosage: ONGOING: NO
     Route: 042
     Dates: end: 2019

REACTIONS (8)
  - Fatigue [Not Recovered/Not Resolved]
  - Rash [Not Recovered/Not Resolved]
  - Dry skin [Not Recovered/Not Resolved]
  - Off label use [Unknown]
  - Urticaria [Not Recovered/Not Resolved]
  - Intentional product use issue [Unknown]
  - Feeling hot [Not Recovered/Not Resolved]
  - High density lipoprotein increased [Unknown]

NARRATIVE: CASE EVENT DATE: 20200429
